FAERS Safety Report 9433303 (Version 1)
Quarter: 2013Q3

REPORT INFORMATION
  Report Type: Spontaneous
  Country: PT (occurrence: PT)
  Receive Date: 20130731
  Receipt Date: 20130731
  Transmission Date: 20140515
  Serious: Yes (Life-Threatening)
  Sender: FDA-Public Use
  Company Number: PT-ACTAVIS-2013-13299

PATIENT
  Sex: Female

DRUGS (2)
  1. DOCETAXEL (UNKNOWN) [Suspect]
     Indication: BREAST CANCER
     Dosage: 169 MG, 3 WEEKS
     Route: 042
     Dates: start: 20130702, end: 20130702
  2. ORADEXON                           /00016001/ [Concomitant]
     Indication: BREAST CANCER
     Dosage: 20 MG TOTAL
     Route: 065
     Dates: start: 20130702, end: 20130702

REACTIONS (6)
  - Blood pressure decreased [Recovered/Resolved]
  - Oxygen saturation decreased [Recovered/Resolved]
  - Feeling hot [Recovered/Resolved]
  - Nausea [Recovered/Resolved]
  - Product quality issue [Recovered/Resolved]
  - Erythema [Recovered/Resolved]
